FAERS Safety Report 10219569 (Version 1)
Quarter: 2014Q2

REPORT INFORMATION
  Report Type: Spontaneous
  Country: US (occurrence: None)
  Receive Date: 20140604
  Receipt Date: 20140604
  Transmission Date: 20141212
  Serious: Yes (Hospitalization)
  Sender: FDA-Public Use
  Company Number: None

PATIENT
  Age: 66 Year
  Sex: Female

DRUGS (9)
  1. IMBRUVICA 120MG PHARMACYCLICS [Suspect]
     Indication: CHRONIC LYMPHOCYTIC LEUKAEMIA
     Dosage: 3 CAPS QD ORAL
     Route: 048
  2. ALBUTEROL [Concomitant]
  3. AMBIEN [Concomitant]
  4. FLONASE [Concomitant]
  5. IVIG PRODUCT OF UNKNOWN NAME [Concomitant]
  6. RESTATSIS [Concomitant]
  7. LOTEMAX [Concomitant]
  8. TYLENOL [Concomitant]
  9. ZOLOFT [Concomitant]

REACTIONS (1)
  - Hypertensive crisis [None]
